FAERS Safety Report 8335265-7 (Version None)
Quarter: 2012Q2

REPORT INFORMATION
  Report Type: 
  Country: None (occurrence: None)
  Receive Date: 20120503
  Receipt Date: 20120423
  Transmission Date: 20120825
  Serious: Yes (Hospitalization, Other)
  Sender: FDA-Public Use
  Company Number: BR-ROCHE-1047609

PATIENT
  Sex: Female

DRUGS (1)
  1. XOLAIR [Suspect]
     Indication: PRODUCT USED FOR UNKNOWN INDICATION
     Route: 065

REACTIONS (6)
  - DIZZINESS [None]
  - DYSPNOEA [None]
  - DEPRESSION [None]
  - ILL-DEFINED DISORDER [None]
  - ASTHMA [None]
  - DRUG INTERACTION [None]
